FAERS Safety Report 17846186 (Version 1)
Quarter: 2020Q2

REPORT INFORMATION
  Report Type: Spontaneous
  Country: US (occurrence: US)
  Receive Date: 20200601
  Receipt Date: 20200601
  Transmission Date: 20200714
  Serious: No
  Sender: FDA-Public Use
  Company Number: US-B.I. PHARMACEUTICALS,INC./RIDGEFIELD-2020-US-026654

PATIENT
  Age: 39 Year
  Sex: Female

DRUGS (2)
  1. PAXIL [PIROXICAM] [Concomitant]
     Active Substance: PIROXICAM
     Indication: ANXIETY
     Route: 065
  2. JARDIANCE [Suspect]
     Active Substance: EMPAGLIFLOZIN
     Indication: TYPE 2 DIABETES MELLITUS
     Dosage: 25 MG PO ONCE A DAY
     Route: 048
     Dates: start: 202004

REACTIONS (1)
  - Lethargy [Not Recovered/Not Resolved]

NARRATIVE: CASE EVENT DATE: 202005
